FAERS Safety Report 6419998-5 (Version None)
Quarter: 2009Q4

REPORT INFORMATION
  Report Type: 
  Country: None (occurrence: None)
  Receive Date: 20091029
  Receipt Date: 20091020
  Transmission Date: 20100525
  Serious: Yes (Other)
  Sender: FDA-Public Use
  Company Number: BR-PFIZER INC-2009216306

PATIENT

DRUGS (6)
  1. CHAMPIX [Suspect]
     Indication: TOBACCO ABUSE
     Dosage: 1 MG, 2X/DAY
     Route: 048
     Dates: start: 20090401
  2. FLUOXETINE [Concomitant]
     Dosage: UNK
  3. LEXOTAN [Concomitant]
     Dosage: UNK
  4. ESOMEPRAZOLE [Concomitant]
     Dosage: UNK
  5. TRIMEBUTINE [Concomitant]
     Dosage: UNK
  6. GINKO BILOBA [Concomitant]
     Dosage: UNK

REACTIONS (7)
  - ABDOMINAL DISCOMFORT [None]
  - INSOMNIA [None]
  - INTERVERTEBRAL DISC PROTRUSION [None]
  - MALAISE [None]
  - NAUSEA [None]
  - SOMNOLENCE [None]
  - WEIGHT INCREASED [None]
